FAERS Safety Report 5153412-5 (Version None)
Quarter: 2006Q4

REPORT INFORMATION
  Report Type: 
  Country: None (occurrence: None)
  Receive Date: 20061114
  Receipt Date: 20061024
  Transmission Date: 20070319
  Serious: Yes (Other)
  Sender: FDA-Public Use
  Company Number: 6026811

PATIENT
  Sex: Female

DRUGS (4)
  1. EMCORETIC (HYDROCHLOROTHIAZIDE, BISOPROLOL FUMARATE) [Suspect]
     Indication: HYPERTENSION
     Dosage: 10/25 MG; ORAL
     Route: 048
  2. ALENDRONATE (ALENDRONIC ACID) [Concomitant]
  3. CALCIUM [Concomitant]
  4. VITAMIN D [Concomitant]

REACTIONS (3)
  - DISEASE PROGRESSION [None]
  - DRUG INTERACTION [None]
  - OSTEOPOROSIS [None]
